FAERS Safety Report 19862901 (Version 1)
Quarter: 2021Q3

REPORT INFORMATION
  Report Type: Spontaneous
  Country: US (occurrence: US)
  Receive Date: 20210921
  Receipt Date: 20210921
  Transmission Date: 20211014
  Serious: No
  Sender: FDA-Public Use
  Company Number: US-KYOWAKIRIN-2021BKK015610

PATIENT

DRUGS (1)
  1. CRYSVITA [Suspect]
     Active Substance: BUROSUMAB-TWZA
     Indication: HYPOPHOSPHATAEMIC OSTEOMALACIA
     Dosage: UNK
     Route: 065
     Dates: start: 202104

REACTIONS (3)
  - General symptom [Unknown]
  - Condition aggravated [Unknown]
  - Tooth disorder [Unknown]

NARRATIVE: CASE EVENT DATE: 2021
